FAERS Safety Report 17188106 (Version 1)
Quarter: 2019Q4

REPORT INFORMATION
  Report Type: Spontaneous
  Country: SE (occurrence: SE)
  Receive Date: 20191221
  Receipt Date: 20191221
  Transmission Date: 20200122
  Serious: Yes (Hospitalization)
  Sender: FDA-Public Use
  Company Number: SE-ACCORD-166481

PATIENT
  Age: 50 Year
  Sex: Female

DRUGS (4)
  1. NALTREXONE/NALTREXONE HYDROCHLORIDE [Suspect]
     Active Substance: NALTREXONE
     Dosage: ABOUT 15 PIECES OF 50 MG
     Dates: start: 201906, end: 201906
  2. DESLORATADINE. [Suspect]
     Active Substance: DESLORATADINE
     Dosage: 10 PIECE
     Dates: start: 201906, end: 201906
  3. MIRTAZAPINE. [Suspect]
     Active Substance: MIRTAZAPINE
     Dosage: ABOUT 10 PIECES OF 15 MG
     Dates: start: 201906, end: 201906
  4. PROPAVAN [Suspect]
     Active Substance: PROPIOMAZINE
     Dosage: 20 PIECES OF 25 MG
     Route: 048
     Dates: start: 201906, end: 201906

REACTIONS (4)
  - Snoring [Unknown]
  - Intentional self-injury [Unknown]
  - Depressed level of consciousness [Unknown]
  - Intentional overdose [Unknown]

NARRATIVE: CASE EVENT DATE: 201906
